FAERS Safety Report 7009551-7 (Version None)
Quarter: 2010Q3

REPORT INFORMATION
  Report Type: 
  Country: None (occurrence: None)
  Receive Date: 20100923
  Receipt Date: 20100920
  Transmission Date: 20110219
  Serious: Yes (Life-Threatening, Hospitalization, Other)
  Sender: FDA-Public Use
  Company Number: PHFR2010GB02519

PATIENT
  Sex: Male

DRUGS (4)
  1. CLOZARIL [Suspect]
     Indication: SCHIZOPHRENIA
     Dosage: 450MG/DAY
     Route: 048
     Dates: start: 19920911
  2. CLOZARIL [Suspect]
     Dosage: 300MG/DAY
     Route: 048
  3. CLOZARIL [Suspect]
     Dosage: 450MG/DAY
     Route: 048
     Dates: start: 20100819
  4. CLOZARIL [Suspect]
     Dosage: 400 MG, QD
     Route: 048

REACTIONS (23)
  - AGITATION [None]
  - ANTIPSYCHOTIC DRUG LEVEL INCREASED [None]
  - BLOOD ALKALINE PHOSPHATASE INCREASED [None]
  - BLOOD GLUCOSE INCREASED [None]
  - COMMUNICATION DISORDER [None]
  - CONFUSIONAL STATE [None]
  - DYSKINESIA [None]
  - FULL BLOOD COUNT INCREASED [None]
  - HEART RATE INCREASED [None]
  - INFECTION [None]
  - MALAISE [None]
  - MENTAL IMPAIRMENT [None]
  - MUSCLE RIGIDITY [None]
  - MUSCLE TWITCHING [None]
  - NEUTROPHIL COUNT INCREASED [None]
  - PYREXIA [None]
  - RESTLESSNESS [None]
  - SALIVARY HYPERSECRETION [None]
  - SINUS TACHYCARDIA [None]
  - TOTAL CHOLESTEROL/HDL RATIO INCREASED [None]
  - TREMOR [None]
  - URINARY INCONTINENCE [None]
  - WHITE BLOOD CELL COUNT INCREASED [None]
